FAERS Safety Report 8616423-0 (Version None)
Quarter: 2012Q3

REPORT INFORMATION
  Report Type: 
  Country: None (occurrence: None)
  Receive Date: 20120823
  Receipt Date: 20120813
  Transmission Date: 20120928
  Serious: Yes (Other)
  Sender: FDA-Public Use
  Company Number: CHPA2012US018028

PATIENT
  Sex: Male

DRUGS (2)
  1. EX-LAX MAX STR LAX PILLS SENNA [Suspect]
     Indication: CONSTIPATION
     Dosage: UNK, UNK
     Route: 048
  2. EX-LAX MAX STR LAX PILLS SENNA [Suspect]
     Dosage: 6DF AT ONE TIME
     Route: 048

REACTIONS (4)
  - OVERDOSE [None]
  - DRUG DEPENDENCE [None]
  - OESOPHAGEAL STENOSIS [None]
  - DYSPHAGIA [None]
